FAERS Safety Report 6992578-9 (Version None)
Quarter: 2010Q3

REPORT INFORMATION
  Report Type: 
  Country: None (occurrence: None)
  Receive Date: 20100917
  Receipt Date: 20100909
  Transmission Date: 20110219
  Serious: Yes (Other)
  Sender: FDA-Public Use
  Company Number: US-SANOFI-AVENTIS-2010SA054840

PATIENT
  Age: 64 Year
  Sex: Female

DRUGS (2)
  1. APIDRA [Suspect]
     Indication: TYPE 2 DIABETES MELLITUS
     Dosage: 20-30 UNITS 3X A DAY
     Route: 058
  2. OPTICLICK [Suspect]
     Dates: start: 20070101

REACTIONS (1)
  - GLAUCOMA [None]
